FAERS Safety Report 24405941 (Version 8)
Quarter: 2025Q4

REPORT INFORMATION
  Report Type: Spontaneous
  Country: US (occurrence: US)
  Receive Date: 20241007
  Receipt Date: 20251216
  Transmission Date: 20260117
  Serious: No
  Sender: CSL BEHRING
  Company Number: US-BEH-2024179199

PATIENT
  Age: 14 Year
  Sex: Male

DRUGS (4)
  1. HUMATE-P [Suspect]
     Active Substance: HUMAN COAGULATION FACTOR VIII/VON WILLEBRAND FACTOR COMPLEX
     Indication: Von Willebrand^s disease
     Dosage: 1200 RCOF UNITS, QW
     Route: 042
     Dates: start: 201805
  2. HUMATE-P [Suspect]
     Active Substance: HUMAN COAGULATION FACTOR VIII/VON WILLEBRAND FACTOR COMPLEX
     Indication: Prophylaxis
     Dosage: 1200 RCOF UNITS, PRN
     Route: 042
     Dates: start: 201805
  3. SALINE [Concomitant]
     Active Substance: SODIUM CHLORIDE
     Dosage: 10 ML
  4. AMINOCAPROIC ACID [Concomitant]
     Active Substance: AMINOCAPROIC ACID
     Route: 048

REACTIONS (14)
  - Epistaxis [Recovered/Resolved]
  - Pain in extremity [Unknown]
  - Epistaxis [Unknown]
  - Epistaxis [Recovered/Resolved]
  - Epistaxis [Recovered/Resolved]
  - Epistaxis [Recovered/Resolved]
  - Epistaxis [Recovered/Resolved]
  - Epistaxis [Unknown]
  - Epistaxis [Unknown]
  - Epistaxis [Unknown]
  - Epistaxis [Unknown]
  - Epistaxis [Unknown]
  - Epistaxis [Unknown]
  - Epistaxis [Recovered/Resolved]

NARRATIVE: CASE EVENT DATE: 20240812
